FAERS Safety Report 20136202 (Version 4)
Quarter: 2022Q3

REPORT INFORMATION
  Report Type: Spontaneous
  Country: JP (occurrence: JP)
  Receive Date: 20211201
  Receipt Date: 20220811
  Transmission Date: 20221027
  Serious: Yes (Death, Hospitalization, Other)
  Sender: FDA-Public Use
  Company Number: JP-PFIZER INC-202101658082

PATIENT
  Age: 84 Year
  Sex: Male
  Weight: 32.3 kg

DRUGS (13)
  1. VYNDAQEL [Suspect]
     Active Substance: TAFAMIDIS MEGLUMINE
     Dosage: 80 MG, DAILY, AFTER BREAKFAST
     Route: 048
     Dates: start: 20211004
  2. SPIRONOLACTONE [Suspect]
     Active Substance: SPIRONOLACTONE
     Dosage: UNK
     Dates: end: 20211018
  3. FUROSEMIDE [Suspect]
     Active Substance: FUROSEMIDE
     Dosage: 40 MG, DAILY
     Dates: end: 20211018
  4. FUROSEMIDE [Suspect]
     Active Substance: FUROSEMIDE
     Dosage: 20 MG, 1X/DAY, AFTER BREAKFAST
  5. CELECOXIB [Concomitant]
     Active Substance: CELECOXIB
     Indication: Chest pain
     Dosage: UNK
  6. AMIODARONE [Concomitant]
     Active Substance: AMIODARONE
     Dosage: 100 MG, 2X/DAY
     Dates: start: 20210916
  7. AMIODARONE [Concomitant]
     Active Substance: AMIODARONE
     Dosage: 50 MG, 2X/DAY, AFTER BREAKFAST AND DINNER
  8. PIMOBENDAN [Concomitant]
     Active Substance: PIMOBENDAN
     Dosage: 1.25 MG, 2X/DAY, AFTER BREAKAST AND DINNER
     Dates: start: 20210922
  9. SAMSCA [Concomitant]
     Active Substance: TOLVAPTAN
     Dosage: 15 MG, 1X/DAY, AFTER BREAKFAST
  10. LANSOPRAZOLE [Concomitant]
     Active Substance: LANSOPRAZOLE
     Dosage: 15 MG, 1X/DAY, AFTER BREAKFAST
  11. FEBUXOSTAT [Concomitant]
     Active Substance: FEBUXOSTAT
     Dosage: 20 MG, 1X/DAY, AFTER BREAKFAST
  12. EDOXABAN TOSYLATE [Concomitant]
     Active Substance: EDOXABAN TOSYLATE
     Dosage: 15 MG, 1X/DAY, AFTER BREAKFAST
  13. REBAMIPIDE [Concomitant]
     Active Substance: REBAMIPIDE
     Dosage: 100 MG, 3X/DAY, AFTER EACH MEAL

REACTIONS (7)
  - Sudden death [Fatal]
  - Cardiac failure chronic [Fatal]
  - Disease progression [Fatal]
  - Circulatory collapse [Fatal]
  - Cardio-respiratory arrest [Fatal]
  - Blood creatinine increased [Unknown]
  - Chest pain [Unknown]

NARRATIVE: CASE EVENT DATE: 20211018
